FAERS Safety Report 8242750-5 (Version None)
Quarter: 2012Q1

REPORT INFORMATION
  Report Type: 
  Country: None (occurrence: None)
  Receive Date: 20120329
  Receipt Date: 20120320
  Transmission Date: 20120608
  Serious: Yes (Other)
  Sender: FDA-Public Use
  Company Number: US-BRISTOL-MYERS SQUIBB COMPANY-16466039

PATIENT

DRUGS (1)
  1. YERVOY [Suspect]

REACTIONS (1)
  - LUNG INFILTRATION [None]
